FAERS Safety Report 12461898 (Version 1)
Quarter: 2016Q2

REPORT INFORMATION
  Report Type: Other
  Country: None (occurrence: FR)
  Receive Date: 20160613
  Receipt Date: 20160613
  Transmission Date: 20160815
  Serious: Yes (Hospitalization)
  Sender: FDA-Public Use
  Company Number: FR-JACOBUS PHARMACEUTICAL COMPANY, INC.-1053750

PATIENT
  Sex: Male
  Weight: 52 kg

DRUGS (6)
  1. AMIKACIN SULFATE. [Suspect]
     Active Substance: AMIKACIN SULFATE
     Route: 042
  2. CYCLOSERINE. [Suspect]
     Active Substance: CYCLOSERINE
     Route: 048
     Dates: start: 20150828
  3. TMC207 [Suspect]
     Active Substance: BEDAQUILINE
     Route: 048
     Dates: start: 20150828
  4. LAMPRENE [Suspect]
     Active Substance: CLOFAZIMINE
     Route: 048
     Dates: start: 20150912
  5. PASER [Suspect]
     Active Substance: AMINOSALICYLIC ACID
     Route: 048
     Dates: start: 20150825
  6. DELTYBA [Suspect]
     Active Substance: DELAMANID
     Route: 048
     Dates: start: 20151002

REACTIONS (2)
  - Fibroma [Recovering/Resolving]
  - Benign soft tissue neoplasm [Recovered/Resolved]
